FAERS Safety Report 15164236 (Version 4)
Quarter: 2018Q4

REPORT INFORMATION
  Report Type: Spontaneous
  Country: US (occurrence: US)
  Receive Date: 20180719
  Receipt Date: 20181226
  Transmission Date: 20190204
  Serious: No
  Sender: FDA-Public Use
  Company Number: US-PFIZER INC-2016580954

PATIENT
  Age: 16 Year
  Sex: Male
  Weight: 77.11 kg

DRUGS (2)
  1. GENOTROPIN [Suspect]
     Active Substance: SOMATROPIN
     Indication: BLOOD TESTOSTERONE DECREASED
     Dosage: 2.8 MG, UNK
     Dates: start: 20161111
  2. GENOTROPIN [Suspect]
     Active Substance: SOMATROPIN
     Indication: BLOOD GROWTH HORMONE
     Dosage: 1.4 MG, DAILY
     Dates: start: 20161116

REACTIONS (5)
  - Faeces hard [Unknown]
  - Acne [Unknown]
  - Intentional dose omission [Unknown]
  - Weight increased [Unknown]
  - Insulin-like growth factor increased [Unknown]

NARRATIVE: CASE EVENT DATE: 20161212
